FAERS Safety Report 5507427-5 (Version None)
Quarter: 2007Q4

REPORT INFORMATION
  Report Type: 
  Country: None (occurrence: None)
  Receive Date: 20071106
  Receipt Date: 20071030
  Transmission Date: 20080405
  Serious: Yes (Hospitalization)
  Sender: FDA-Public Use
  Company Number: JP-BRISTOL-MYERS SQUIBB COMPANY-13969720

PATIENT
  Age: 62 Year
  Sex: Female

DRUGS (7)
  1. GATIFLOXACIN [Suspect]
     Route: 048
     Dates: start: 20070812, end: 20070816
  2. THYRADIN S [Concomitant]
     Route: 048
  3. AMLODIPINE [Concomitant]
     Route: 048
  4. METHYCOBAL [Concomitant]
     Route: 048
  5. ARTIST [Concomitant]
     Route: 048
  6. GANATON [Concomitant]
     Route: 048
  7. OMEPRAZOLE [Concomitant]
     Route: 048

REACTIONS (1)
  - HYPOGLYCAEMIA [None]
